FAERS Safety Report 13995131 (Version 1)
Quarter: 2017Q3

REPORT INFORMATION
  Report Type: Report from Study
  Country: None (occurrence: CA)
  Receive Date: 20170921
  Receipt Date: 20170921
  Transmission Date: 20171128
  Serious: Yes (Other)
  Sender: FDA-Public Use
  Company Number: CA-ABBVIE-17K-028-2107917-00

PATIENT
  Sex: Male

DRUGS (1)
  1. HUMIRA [Suspect]
     Active Substance: ADALIMUMAB
     Indication: CROHN^S DISEASE
     Route: 058
     Dates: start: 20131008

REACTIONS (5)
  - Abnormal faeces [Not Recovered/Not Resolved]
  - Fatigue [Not Recovered/Not Resolved]
  - Crohn^s disease [Unknown]
  - Nasopharyngitis [Not Recovered/Not Resolved]
  - Abdominal rigidity [Recovered/Resolved]
